FAERS Safety Report 5370625-8 (Version None)
Quarter: 2007Q2

REPORT INFORMATION
  Report Type: 
  Country: None (occurrence: None)
  Receive Date: 20070622
  Receipt Date: 20070606
  Transmission Date: 20071010
  Serious: Yes (Other)
  Sender: FDA-Public Use
  Company Number: 2006US000531

PATIENT
  Age: 49 Year
  Sex: Female

DRUGS (6)
  1. AMBISOME [Suspect]
     Indication: ANTIFUNGAL PROPHYLAXIS
     Dosage: 7.5 MG/KG, WEEKLY, IV NOS
     Route: 042
  2. PREDNISONE TAB [Concomitant]
  3. CYCLOSPORINE [Concomitant]
  4. MYCOPHENOLATE MOFETIL [Concomitant]
  5. FLUDARABINE PHOSPHATE [Concomitant]
  6. BUSULFAN (BUSULFAN) [Concomitant]

REACTIONS (4)
  - ARRHYTHMIA [None]
  - CHEST PAIN [None]
  - EXTRASYSTOLES [None]
  - IDIOSYNCRATIC DRUG REACTION [None]
